FAERS Safety Report 17300321 (Version 1)
Quarter: 2020Q1

REPORT INFORMATION
  Report Type: Spontaneous
  Country: US (occurrence: US)
  Receive Date: 20200122
  Receipt Date: 20200122
  Transmission Date: 20200409
  Serious: No
  Sender: FDA-Public Use
  Company Number: US-ALLERGAN-1900898US

PATIENT
  Age: 64 Year
  Sex: Female

DRUGS (2)
  1. SOOTHE EYE DROPS [Concomitant]
     Indication: DRY EYE
     Dosage: UNK, PRN (USUALLY AT NIGHT)
  2. RESTASIS [Suspect]
     Active Substance: CYCLOSPORINE
     Indication: DRY EYE
     Dosage: 2 GTT, BID
     Route: 047

REACTIONS (4)
  - Product container issue [Unknown]
  - Incorrect dose administered [Unknown]
  - Ocular hyperaemia [Not Recovered/Not Resolved]
  - Foreign body sensation in eyes [Not Recovered/Not Resolved]

NARRATIVE: CASE EVENT DATE: 201901
